FAERS Safety Report 9737125 (Version 2)
Quarter: 2014Q3

REPORT INFORMATION
  Report Type: Spontaneous
  Country: US (occurrence: US)
  Receive Date: 20131206
  Receipt Date: 20140905
  Transmission Date: 20150326
  Serious: Yes (Life-Threatening, Disabling, Other)
  Sender: FDA-Public Use
  Company Number: US-BAYER-2013-147240

PATIENT
  Age: 49 Year
  Sex: Female
  Weight: 104.31 kg

DRUGS (6)
  1. YAZ [Suspect]
     Active Substance: DROSPIRENONE\ETHINYL ESTRADIOL
     Indication: PREMENSTRUAL SYNDROME
     Dosage: UNK
     Dates: start: 200807, end: 2012
  2. AMOXICILLIN. [Concomitant]
     Active Substance: AMOXICILLIN
     Dosage: 875 MG, UNK
     Dates: start: 20110816
  3. LEVOTHYROXINE [Concomitant]
     Active Substance: LEVOTHYROXINE
     Dosage: 200 MCG
     Dates: start: 20110829
  4. GIANVI [Suspect]
     Active Substance: DROSPIRENONE\ETHINYL ESTRADIOL
  5. AZITHROMYCIN [Concomitant]
     Active Substance: AZITHROMYCIN ANHYDROUS
     Dosage: 250 MG, UNK
     Dates: start: 20110822
  6. FLUOXETINE [Concomitant]
     Active Substance: FLUOXETINE\FLUOXETINE HYDROCHLORIDE
     Dosage: 20 MG, UNK
     Dates: start: 20110829

REACTIONS (17)
  - Cerebrovascular accident [None]
  - Pain [None]
  - Cognitive disorder [None]
  - Anhedonia [None]
  - Quality of life decreased [None]
  - Emotional distress [None]
  - General physical health deterioration [None]
  - Limb injury [None]
  - Activities of daily living impaired [None]
  - Thrombosis [None]
  - Peripheral swelling [None]
  - Anxiety [None]
  - Thrombophlebitis superficial [None]
  - Brain injury [None]
  - Thrombophlebitis [None]
  - Injury [None]
  - Pain in extremity [None]

NARRATIVE: CASE EVENT DATE: 201110
